FAERS Safety Report 19424097 (Version 1)
Quarter: 2021Q2

REPORT INFORMATION
  Report Type: Spontaneous
  Country: US (occurrence: US)
  Receive Date: 20210616
  Receipt Date: 20210616
  Transmission Date: 20210717
  Serious: No
  Sender: FDA-Public Use
  Company Number: US-TEVA-2021-US-1921539

PATIENT
  Age: 72 Year
  Sex: Male

DRUGS (1)
  1. TESTOSTERONE. [Suspect]
     Active Substance: TESTOSTERONE
     Route: 061
     Dates: start: 202105

REACTIONS (1)
  - Application site rash [Unknown]

NARRATIVE: CASE EVENT DATE: 202105
